FAERS Safety Report 18419052 (Version 1)
Quarter: 2020Q4

REPORT INFORMATION
  Report Type: Spontaneous
  Country: US (occurrence: US)
  Receive Date: 20201023
  Receipt Date: 20201023
  Transmission Date: 20210114
  Serious: Yes (Hospitalization, Other)
  Sender: FDA-Public Use
  Company Number: US-ASTELLAS-2020US037383

PATIENT
  Age: 31 Year
  Sex: Male

DRUGS (2)
  1. TACROLIMUS. [Suspect]
     Active Substance: TACROLIMUS
     Indication: RENAL TRANSPLANT
     Dosage: UNK UNK, UNKNOWN FREQ.
     Route: 065
  2. SIROLIMUS. [Concomitant]
     Active Substance: SIROLIMUS
     Indication: RENAL TRANSPLANT
     Dosage: UNK UNK, UNKNOWN FREQ.
     Route: 065

REACTIONS (5)
  - Immunosuppressant drug level increased [Recovered/Resolved]
  - Toxicity to various agents [Recovered/Resolved]
  - Clostridium difficile infection [Unknown]
  - Acute kidney injury [Recovered/Resolved]
  - Thrombotic microangiopathy [Recovering/Resolving]
